FAERS Safety Report 11035755 (Version 1)
Quarter: 2015Q2

REPORT INFORMATION
  Report Type: Spontaneous
  Country: US (occurrence: US)
  Receive Date: 20150415
  Receipt Date: 20150415
  Transmission Date: 20150821
  Serious: No
  Sender: FDA-Public Use
  Company Number: US-009507513-1504USA003324

PATIENT
  Sex: Female

DRUGS (1)
  1. NEXPLANON [Suspect]
     Active Substance: ETONOGESTREL
     Dosage: UNK
     Route: 059
     Dates: start: 20150218

REACTIONS (4)
  - Increased appetite [Unknown]
  - Haemorrhage [Unknown]
  - Fatigue [Unknown]
  - Metrorrhagia [Unknown]

NARRATIVE: CASE EVENT DATE: 2015
